FAERS Safety Report 5222994-7 (Version None)
Quarter: 2007Q1

REPORT INFORMATION
  Report Type: 
  Country: None (occurrence: None)
  Receive Date: 20070124
  Receipt Date: 20070112
  Transmission Date: 20070707
  Serious: No
  Sender: FDA-Public Use
  Company Number: 2006-149072-NL

PATIENT
  Age: 35 Year
  Sex: Female

DRUGS (2)
  1. ETONOGESTREL [Suspect]
     Dosage: DF
     Dates: start: 20060327
  2. CARBAMAZEPINE [Concomitant]

REACTIONS (4)
  - COMPLICATION OF DEVICE INSERTION [None]
  - DEVICE MIGRATION [None]
  - GRAND MAL CONVULSION [None]
  - OESTRADIOL INCREASED [None]
